FAERS Safety Report 12732009 (Version 1)
Quarter: 2016Q3

REPORT INFORMATION
  Report Type: Spontaneous
  Country: US (occurrence: US)
  Receive Date: 20160909
  Receipt Date: 20160909
  Transmission Date: 20161109
  Serious: Yes (Other)
  Sender: FDA-Public Use
  Company Number: None

PATIENT
  Age: 38 Year
  Sex: Female

DRUGS (1)
  1. NEXPLANON [Suspect]
     Active Substance: ETONOGESTREL
     Indication: CONTRACEPTION
     Route: 059
     Dates: start: 20160831

REACTIONS (6)
  - Implant site erythema [None]
  - Implant site pruritus [None]
  - Implant site oedema [None]
  - Implant site infection [None]
  - Implant site reaction [None]
  - Implant site warmth [None]

NARRATIVE: CASE EVENT DATE: 20160908
